FAERS Safety Report 13589582 (Version 2)
Quarter: 2017Q2

REPORT INFORMATION
  Report Type: Spontaneous
  Country: US (occurrence: US)
  Receive Date: 20170529
  Receipt Date: 20170612
  Transmission Date: 20170830
  Serious: Yes (Other)
  Sender: FDA-Public Use
  Company Number: US-009507513-1705USA014514

PATIENT
  Sex: Female

DRUGS (1)
  1. IMPLANON [Suspect]
     Active Substance: ETONOGESTREL
     Dosage: UNK
     Route: 059
     Dates: start: 2014

REACTIONS (6)
  - Attention deficit/hyperactivity disorder [Unknown]
  - Menopausal symptoms [Unknown]
  - Unintended pregnancy [Recovered/Resolved]
  - Thyroid disorder [Unknown]
  - Pregnancy with implant contraceptive [Recovered/Resolved]
  - Hyperhidrosis [Unknown]
